FAERS Safety Report 13226966 (Version 2)
Quarter: 2017Q1

REPORT INFORMATION
  Report Type: Spontaneous
  Country: JP (occurrence: JP)
  Receive Date: 20170213
  Receipt Date: 20170301
  Transmission Date: 20170428
  Serious: Yes (Life-Threatening, Hospitalization, Other)
  Sender: FDA-Public Use
  Company Number: JP-PFIZER INC-2017060015

PATIENT
  Age: 84 Year
  Sex: Female
  Weight: 66 kg

DRUGS (14)
  1. LYRICA [Suspect]
     Active Substance: PREGABALIN
     Dosage: 25 MG, 2X/DAY
     Route: 048
     Dates: start: 20161031, end: 20161104
  2. LYRICA [Suspect]
     Active Substance: PREGABALIN
     Indication: POST HERPETIC NEURALGIA
     Dosage: 300 MG, DAILY
     Route: 048
  3. LYRICA [Suspect]
     Active Substance: PREGABALIN
     Dosage: 75 MG, 2X/DAY
     Route: 048
     Dates: start: 20161105, end: 20161118
  4. VOLTAREN [Suspect]
     Active Substance: DICLOFENAC SODIUM
     Indication: POST HERPETIC NEURALGIA
     Dosage: 50 MG, 1X/DAY
     Route: 054
     Dates: start: 20161111, end: 20161206
  5. LOXONIN [Suspect]
     Active Substance: LOXOPROFEN SODIUM
     Indication: POST HERPETIC NEURALGIA
     Dosage: 60 MG, 3X/DAY
     Route: 048
     Dates: start: 20161031, end: 20161214
  6. METHYCOBAL [Concomitant]
     Active Substance: METHYLCOBALAMIN
     Dosage: 0.5 G, 3X/DAY
     Route: 048
     Dates: start: 20161031, end: 20161201
  7. VALACICLOVIR [Concomitant]
     Active Substance: VALACYCLOVIR HYDROCHLORIDE
     Dosage: 1000 MG, 3X/DAY
     Route: 048
     Dates: start: 20161031, end: 20161106
  8. AIMIX LD [Concomitant]
     Active Substance: AMLODIPINE BESYLATE\IRBESARTAN
     Dosage: 1 DF, 1X/DAY, 1 TABLETS
     Route: 048
     Dates: start: 20151029, end: 20161214
  9. REBAMIPIDE [Concomitant]
     Active Substance: REBAMIPIDE
     Dosage: 100 MG, 3X/DAY
     Route: 048
     Dates: start: 20161031, end: 20161214
  10. NATRIX [Concomitant]
     Active Substance: INDAPAMIDE
     Dosage: 1 MG, 1X/DAY
     Route: 048
     Dates: start: 20160115, end: 20161214
  11. LYRICA [Suspect]
     Active Substance: PREGABALIN
     Dosage: 150 MG, 2X/DAY
     Route: 048
     Dates: start: 20161119, end: 20161214
  12. JANUVIA [Concomitant]
     Active Substance: SITAGLIPTIN PHOSPHATE
     Dosage: 50 MG, 1X/DAY
     Route: 048
     Dates: start: 20150827, end: 20161214
  13. PIOGLITAZONE. [Concomitant]
     Active Substance: PIOGLITAZONE
     Dosage: 15 MG, 1X/DAY
     Route: 048
     Dates: start: 20150827, end: 20161214
  14. METGLUCO [Concomitant]
     Active Substance: METFORMIN HYDROCHLORIDE
     Dosage: 500 MG, 1X/DAY
     Route: 048
     Dates: start: 20150709, end: 20161214

REACTIONS (3)
  - Duodenal ulcer perforation [Unknown]
  - Small intestinal haemorrhage [Recovered/Resolved]
  - Drug ineffective [Unknown]

NARRATIVE: CASE EVENT DATE: 20161226
